FAERS Safety Report 18012622 (Version 1)
Quarter: 2020Q3

REPORT INFORMATION
  Report Type: Spontaneous
  Country: US (occurrence: US)
  Receive Date: 20200712
  Receipt Date: 20200712
  Transmission Date: 20201103
  Serious: Yes (Other)
  Sender: FDA-Public Use
  Company Number: None

PATIENT
  Age: 54 Year
  Sex: Male
  Weight: 90.9 kg

DRUGS (3)
  1. REMDESIVIR. [Suspect]
     Active Substance: REMDESIVIR
     Indication: SARS-COV-2 TEST POSITIVE
     Route: 040
     Dates: start: 20200708, end: 20200711
  2. DECADRON 6MG IV DAILY [Concomitant]
     Dates: start: 20200709
  3. ACTEMRA 400MG IV X ONE [Concomitant]
     Dates: start: 20200708, end: 20200708

REACTIONS (2)
  - Thrombocytopenia [None]
  - International normalised ratio increased [None]

NARRATIVE: CASE EVENT DATE: 20200711
